FAERS Safety Report 16308948 (Version 1)
Quarter: 2019Q2

REPORT INFORMATION
  Report Type: Spontaneous
  Country: US (occurrence: US)
  Receive Date: 20190514
  Receipt Date: 20190514
  Transmission Date: 20190711
  Serious: No
  Sender: FDA-Public Use
  Company Number: US-PFIZER INC-2019200294

PATIENT
  Age: 81 Year
  Sex: Female
  Weight: 55.34 kg

DRUGS (2)
  1. ADVIL LIQUI GELS [Concomitant]
     Indication: PAIN
     Dosage: 200 MG, 3X/DAY
     Route: 048
  2. LYRICA [Suspect]
     Active Substance: PREGABALIN
     Indication: NEURALGIA
     Dosage: 100 MG, 3X/DAY
     Route: 048
     Dates: start: 20190424

REACTIONS (1)
  - Dizziness [Not Recovered/Not Resolved]
